FAERS Safety Report 8091550-8 (Version None)
Quarter: 2012Q1

REPORT INFORMATION
  Report Type: 
  Country: None (occurrence: None)
  Receive Date: 20120129
  Receipt Date: 20110921
  Transmission Date: 20120608
  Serious: No
  Sender: FDA-Public Use
  Company Number: US-ABBOTT-11P-163-0853828-00

PATIENT
  Age: 57 Year
  Sex: Male

DRUGS (5)
  1. AZULFIDINE [Concomitant]
     Indication: INFLAMMATION
  2. ASCORBIC ACID [Concomitant]
     Indication: PRODUCT USED FOR UNKNOWN INDICATION
  3. HUMIRA [Suspect]
     Indication: CROHN'S DISEASE
     Dates: start: 20110501
  4. PREDNISONE TAB [Concomitant]
     Indication: INFLAMMATION
  5. FISH OIL [Concomitant]
     Indication: PRODUCT USED FOR UNKNOWN INDICATION

REACTIONS (6)
  - ARTHRITIS ENTEROPATHIC [None]
  - DRUG INEFFECTIVE [None]
  - INFLAMMATION [None]
  - FATIGUE [None]
  - INFLUENZA [None]
  - MUSCULOSKELETAL STIFFNESS [None]
